FAERS Safety Report 8870192 (Version 2)
Quarter: 2012Q4

REPORT INFORMATION
  Report Type: 
  Country: US (occurrence: US)
  Receive Date: 20121027
  Receipt Date: 20121205
  Transmission Date: 20130627
  Serious: No
  Sender: FDA-Public Use
  Company Number: US-ROXANE LABORATORIES, INC.-2012-RO-02032RO

PATIENT
  Age: 40 Year
  Sex: Male

DRUGS (12)
  1. HYDROMORPHONE [Suspect]
     Indication: PAIN
     Dosage: 20 mg
     Route: 048
     Dates: start: 20121004
  2. LASIX [Concomitant]
  3. PROTONIX [Concomitant]
  4. NEURONTIN [Concomitant]
  5. LISINOPRIL [Concomitant]
  6. GLUCOPHAGE [Concomitant]
  7. LIPITROL [Concomitant]
  8. SPIRIVA [Concomitant]
  9. ALBUTEROL [Concomitant]
  10. HYDROCHLOROTHIAZIDE [Concomitant]
  11. COUMADIN [Concomitant]
  12. CYCLOBENZAPRINE [Concomitant]

REACTIONS (2)
  - Drug ineffective [Not Recovered/Not Resolved]
  - Product quality issue [Not Recovered/Not Resolved]
